FAERS Safety Report 9985483 (Version 2)
Quarter: 2014Q1

REPORT INFORMATION
  Report Type: Spontaneous
  Country: JP (occurrence: JP)
  Receive Date: 20140307
  Receipt Date: 20140331
  Transmission Date: 20141002
  Serious: Yes (Hospitalization, Other)
  Sender: FDA-Public Use
  Company Number: JP-TAKEDA-2014TJP001638

PATIENT
  Age: 77 Year
  Sex: Male
  Weight: 47.4 kg

DRUGS (5)
  1. TAKEPRON OD TABLETS 30 [Suspect]
     Indication: PROPHYLAXIS
     Dosage: 30 MG, QD
     Route: 048
     Dates: start: 20131216, end: 20140209
  2. RISPERDAL [Suspect]
     Indication: SCHIZOPHRENIA
     Dosage: 1 MG, QD
     Route: 048
     Dates: start: 20140201, end: 20140207
  3. CEFOTIAM HYDROCHLORIDE [Suspect]
     Indication: SEPSIS
     Dosage: 2 G, BID
     Route: 050
     Dates: start: 20140128, end: 20140207
  4. WARFARIN POTASSIUM [Concomitant]
     Indication: PROPHYLAXIS
     Dosage: 1-2 MG/DAY
     Route: 048
     Dates: start: 20131216
  5. MEROPEN                            /01250502/ [Concomitant]
     Indication: SEPSIS
     Dosage: 1 G, BID
     Route: 050
     Dates: start: 20140124, end: 20140127

REACTIONS (3)
  - Neutropenia [Recovered/Resolved]
  - Sepsis [Recovering/Resolving]
  - Urinary tract infection [Recovering/Resolving]
